FAERS Safety Report 17115913 (Version 2)
Quarter: 2019Q4

REPORT INFORMATION
  Report Type: Spontaneous
  Country: US (occurrence: US)
  Receive Date: 20191205
  Receipt Date: 20191209
  Transmission Date: 20200122
  Serious: No
  Sender: FDA-Public Use
  Company Number: US-PFIZER INC-2019525159

PATIENT
  Age: 68 Year
  Sex: Female

DRUGS (3)
  1. XELJANZ [Suspect]
     Active Substance: TOFACITINIB CITRATE
     Indication: RHEUMATOID ARTHRITIS
     Dosage: 5 MG, 2X/DAY
  2. XELJANZ [Suspect]
     Active Substance: TOFACITINIB CITRATE
     Dosage: 10 MG, 1X/DAY
     Route: 048
  3. XELJANZ [Suspect]
     Active Substance: TOFACITINIB CITRATE
     Dosage: 5 MG, 2X/DAY
     Dates: end: 20190611

REACTIONS (26)
  - Alopecia [Recovering/Resolving]
  - Dry mouth [Recovering/Resolving]
  - Skin irritation [Recovering/Resolving]
  - Swelling face [Recovering/Resolving]
  - Muscle spasms [Recovering/Resolving]
  - Heart rate increased [Recovering/Resolving]
  - Dyspnoea [Recovering/Resolving]
  - Neuralgia [Recovered/Resolved]
  - Paraesthesia [Recovering/Resolving]
  - Pain [Recovered/Resolved]
  - Pain in extremity [Recovered/Resolved]
  - Anosmia [Recovering/Resolving]
  - Asthenia [Recovered/Resolved]
  - Erythema [Recovering/Resolving]
  - Swollen tongue [Recovering/Resolving]
  - Tinnitus [Recovering/Resolving]
  - Myalgia [Recovered/Resolved]
  - Gait disturbance [Recovered/Resolved]
  - Vision blurred [Recovering/Resolving]
  - Hypoacusis [Recovering/Resolving]
  - Urine output decreased [Recovering/Resolving]
  - Decreased appetite [Recovering/Resolving]
  - Dizziness [Recovering/Resolving]
  - Hyperhidrosis [Recovered/Resolved]
  - Confusional state [Recovering/Resolving]
  - Respiratory rate increased [Recovering/Resolving]

NARRATIVE: CASE EVENT DATE: 20190522
